FAERS Safety Report 5990483-8 (Version None)
Quarter: 2008Q4

REPORT INFORMATION
  Report Type: 
  Country: None (occurrence: None)
  Receive Date: 20081202
  Receipt Date: 20080421
  Transmission Date: 20090506
  Serious: Yes (Disabling)
  Sender: FDA-Public Use
  Company Number: WAES 0804USA04613

PATIENT
  Age: 52 Year
  Sex: Female

DRUGS (5)
  1. FOSAMAX [Suspect]
     Dosage: PO
     Route: 048
  2. AVANDIA [Concomitant]
  3. GLUCOVANCE [Concomitant]
  4. JANUVIA [Concomitant]
  5. SYNTHROID [Concomitant]

REACTIONS (1)
  - IRITIS [None]
